FAERS Safety Report 7315550-8 (Version None)
Quarter: 2011Q1

REPORT INFORMATION
  Report Type: 
  Country: None (occurrence: None)
  Receive Date: 20110225
  Receipt Date: 20110210
  Transmission Date: 20110831
  Serious: Yes (Hospitalization)
  Sender: FDA-Public Use
  Company Number: PL-JNJFOC-20110200388

PATIENT
  Sex: Female
  Weight: 74 kg

DRUGS (18)
  1. FUROSEMIDE [Concomitant]
     Route: 042
  2. DICLOFENAC [Concomitant]
     Route: 048
  3. LACIDIPINE [Concomitant]
     Route: 048
  4. GOLIMUMAB [Suspect]
     Indication: RHEUMATOID ARTHRITIS
     Route: 058
  5. METHOTREXATE [Concomitant]
     Route: 048
  6. METHOTREXATE [Suspect]
     Indication: RHEUMATOID ARTHRITIS
     Route: 048
  7. METHOTREXATE [Concomitant]
     Route: 048
  8. ENOXAPARIN SODIUM [Concomitant]
     Route: 058
  9. PANTOPRAZOLE [Concomitant]
     Route: 048
  10. ALLOPURINOL [Concomitant]
     Route: 048
  11. FUROSEMIDE [Concomitant]
     Route: 042
  12. GOLIMUMAB [Suspect]
     Route: 058
  13. BISOPROLOL FUMARATE [Concomitant]
     Route: 048
  14. TRIMEBUTINE [Concomitant]
     Route: 048
  15. SODIUM CHLORIDE INFUSION [Concomitant]
     Route: 042
  16. PWE (COMPOUND ELECTROLYTE SOLUTION) [Concomitant]
     Route: 042
  17. PLACEBO [Suspect]
     Indication: RHEUMATOID ARTHRITIS
     Route: 030
  18. LACTOBACILLUS ACIDOPHILUS [Concomitant]
     Route: 048

REACTIONS (1)
  - INTERSTITIAL LUNG DISEASE [None]
